FAERS Safety Report 23724121 (Version 3)
Quarter: 2024Q2

REPORT INFORMATION
  Report Type: Report from Study
  Country: BR (occurrence: BR)
  Receive Date: 20240409
  Receipt Date: 20240516
  Transmission Date: 20240715
  Serious: Yes (Other)
  Sender: FDA-Public Use
  Company Number: BR-BAYER-2024A026597

PATIENT
  Age: 73 Year
  Sex: Male

DRUGS (2)
  1. NEXAVAR [Suspect]
     Active Substance: SORAFENIB
     Indication: Hepatocellular carcinoma
     Dosage: 400 MG, BID
     Dates: start: 20240201, end: 20240209
  2. NEXAVAR [Suspect]
     Active Substance: SORAFENIB
     Indication: Hepatocellular carcinoma
     Dosage: 200 MG, BID
     Dates: start: 20240224, end: 20240320

REACTIONS (18)
  - Feeding disorder [Recovered/Resolved]
  - Gait inability [Recovering/Resolving]
  - Oral herpes [Recovering/Resolving]
  - Aphthous ulcer [Recovering/Resolving]
  - Blister [Recovering/Resolving]
  - Palmoplantar keratoderma [Recovering/Resolving]
  - Pruritus [Unknown]
  - Skin fissures [Recovering/Resolving]
  - Dry skin [Recovering/Resolving]
  - Product dose omission in error [None]
  - Weight decreased [None]
  - Asthenia [Recovering/Resolving]
  - Coordination abnormal [Recovering/Resolving]
  - Joint stiffness [Recovering/Resolving]
  - Musculoskeletal stiffness [Recovering/Resolving]
  - Skin fissures [Recovered/Resolved with Sequelae]
  - Grip strength decreased [Recovering/Resolving]
  - Skin exfoliation [Recovering/Resolving]

NARRATIVE: CASE EVENT DATE: 20240201
